FAERS Safety Report 5043696-6 (Version None)
Quarter: 2006Q2

REPORT INFORMATION
  Report Type: 
  Country: None (occurrence: None)
  Receive Date: 20060601
  Receipt Date: 20060210
  Transmission Date: 20061013
  Serious: No
  Sender: FDA-Public Use
  Company Number: 2006PV007747

PATIENT
  Age: 61 Year
  Sex: Male
  Weight: 81.6475 kg

DRUGS (6)
  1. BYETTA [Suspect]
     Indication: DIABETES MELLITUS NON-INSULIN-DEPENDENT
     Dosage: SEE IMAGE
     Route: 058
     Dates: start: 20060110, end: 20060116
  2. AVANDAMET [Concomitant]
  3. LANTUS [Concomitant]
  4. TRICOR [Concomitant]
  5. ZETIA [Concomitant]
  6. LISINOPRIL [Concomitant]

REACTIONS (6)
  - ABDOMINAL PAIN [None]
  - EYE SWELLING [None]
  - MYALGIA [None]
  - NAUSEA [None]
  - SINUS CONGESTION [None]
  - SWELLING FACE [None]
